FAERS Safety Report 9836452 (Version 2)
Quarter: 2014Q1

REPORT INFORMATION
  Report Type: Spontaneous
  Country: US (occurrence: US)
  Receive Date: 20140123
  Receipt Date: 20140320
  Transmission Date: 20141002
  Serious: No
  Sender: FDA-Public Use
  Company Number: US-BIOGENIDEC-2014BI006898

PATIENT
  Sex: Female

DRUGS (2)
  1. AVONEX [Suspect]
     Indication: MULTIPLE SCLEROSIS
     Route: 030
  2. COPAXONE [Concomitant]

REACTIONS (8)
  - Cognitive disorder [Recovered/Resolved]
  - Memory impairment [Recovered/Resolved]
  - Injection site bruising [Not Recovered/Not Resolved]
  - Injection site mass [Not Recovered/Not Resolved]
  - Pain [Not Recovered/Not Resolved]
  - Fatigue [Recovered/Resolved]
  - Influenza like illness [Recovered/Resolved]
  - Depression [Recovered/Resolved]
